FAERS Safety Report 9509874 (Version 2)
Quarter: 2013Q3

REPORT INFORMATION
  Report Type: Spontaneous
  Country: US (occurrence: US)
  Receive Date: 20130909
  Receipt Date: 20130909
  Transmission Date: 20140515
  Serious: Yes (Death, Hospitalization)
  Sender: FDA-Public Use
  Company Number: US-US-EMD SERONO, INC.-230922J10USA

PATIENT
  Age: 40 Year
  Sex: Female

DRUGS (1)
  1. REBIF [Suspect]
     Indication: MULTIPLE SCLEROSIS
     Route: 058
     Dates: start: 20091003, end: 20091225

REACTIONS (7)
  - Breast cancer metastatic [Fatal]
  - Metastases to central nervous system [Fatal]
  - Metastases to spine [Fatal]
  - Staphylococcal infection [Recovering/Resolving]
  - Incision site inflammation [Recovering/Resolving]
  - Incision site erythema [Recovering/Resolving]
  - Purulent discharge [Recovering/Resolving]
